FAERS Safety Report 7828327-1 (Version None)
Quarter: 2011Q4

REPORT INFORMATION
  Report Type: 
  Country: None (occurrence: None)
  Receive Date: 20111020
  Receipt Date: 20111011
  Transmission Date: 20120403
  Serious: Yes (Other)
  Sender: FDA-Public Use
  Company Number: CH-MPIJNJ-2011-04878

PATIENT

DRUGS (4)
  1. VELCADE [Suspect]
     Indication: MANTLE CELL LYMPHOMA
     Dosage: 2 MG, UNK
     Route: 042
     Dates: start: 20110704, end: 20110914
  2. REMERON [Concomitant]
     Dosage: 30 MG, UNK
     Route: 048
  3. STRUCTUM                           /02117803/ [Concomitant]
     Dosage: 500 MG, UNK
  4. BETASERC                           /00141801/ [Concomitant]
     Dosage: 24 MG, BID
     Route: 048

REACTIONS (2)
  - MUCOSAL INFLAMMATION [None]
  - OFF LABEL USE [None]
